FAERS Safety Report 9210588 (Version 1)
Quarter: 2013Q2

REPORT INFORMATION
  Report Type: Spontaneous
  Country: US (occurrence: US)
  Receive Date: 20130404
  Receipt Date: 20130404
  Transmission Date: 20140414
  Serious: Yes (Hospitalization, Disabling, Other)
  Sender: FDA-Public Use
  Company Number: US-009507513-1104USA03261

PATIENT
  Sex: Female
  Weight: 82.55 kg

DRUGS (8)
  1. FOSAMAX [Suspect]
     Indication: OSTEOPOROSIS
     Dosage: 70 MG, UNK
     Route: 048
     Dates: start: 20070917, end: 20071222
  2. FOSAMAX [Suspect]
     Indication: OSTEOPENIA
  3. ATIVAN [Concomitant]
     Indication: ANXIETY
     Dosage: UNK MG, UNK
     Dates: start: 2006, end: 2009
  4. CYMBALTA [Concomitant]
     Indication: DEPRESSION
     Dates: start: 20050101
  5. LAMICTAL [Concomitant]
     Indication: DEPRESSION
     Dosage: 100 MG, UNK
     Dates: start: 2000
  6. ZOLOFT [Concomitant]
     Indication: DEPRESSION
     Dosage: 100 MG, UNK
     Dates: start: 2001
  7. FOSAMAX [Suspect]
     Indication: OSTEOPENIA
     Dosage: 70 MG, UNK
     Route: 048
     Dates: start: 20080212, end: 20110201
  8. FOSAMAX [Suspect]
     Indication: OSTEOPOROSIS

REACTIONS (58)
  - Osteomyelitis [Not Recovered/Not Resolved]
  - Medical device removal [Unknown]
  - Debridement [Unknown]
  - Oral cavity fistula [Not Recovered/Not Resolved]
  - Jaw disorder [Unknown]
  - Osteonecrosis [Unknown]
  - Alpha haemolytic streptococcal infection [Recovered/Resolved]
  - Wound dehiscence [Recovered/Resolved]
  - Abscess jaw [Unknown]
  - Purulent discharge [Recovered/Resolved]
  - Periodontal disease [Unknown]
  - Osteonecrosis of jaw [Unknown]
  - Osteonecrosis of jaw [Not Recovered/Not Resolved]
  - Adverse event [Unknown]
  - Dental caries [Unknown]
  - Oral infection [Unknown]
  - Impaired healing [Not Recovered/Not Resolved]
  - Gingival disorder [Unknown]
  - Abscess oral [Unknown]
  - Impaired healing [Not Recovered/Not Resolved]
  - Fistula discharge [Unknown]
  - Blood cholesterol increased [Unknown]
  - Ankle fracture [Not Recovered/Not Resolved]
  - Temporomandibular joint syndrome [Unknown]
  - Bursitis [Unknown]
  - Hyperhidrosis [Unknown]
  - Skin disorder [Unknown]
  - Epistaxis [Unknown]
  - Cough [Unknown]
  - Abnormal weight gain [Unknown]
  - Pollakiuria [Unknown]
  - Increased tendency to bruise [Unknown]
  - Multiple fractures [Unknown]
  - Feeding tube complication [Unknown]
  - Musculoskeletal disorder [Unknown]
  - Paranasal cyst [Unknown]
  - Device malfunction [Unknown]
  - Cellulitis [Unknown]
  - Graft infection [Unknown]
  - Bronchitis [Not Recovered/Not Resolved]
  - Fibula fracture [Unknown]
  - Influenza [Unknown]
  - Fatigue [Unknown]
  - Dyspnoea [Not Recovered/Not Resolved]
  - Palpitations [Unknown]
  - Fat tissue increased [Unknown]
  - Bone loss [Unknown]
  - Malaise [Unknown]
  - Oedema peripheral [Unknown]
  - Mouth ulceration [Not Recovered/Not Resolved]
  - Gastrooesophageal reflux disease [Unknown]
  - Angioedema [Unknown]
  - Headache [Unknown]
  - Aphthous stomatitis [Unknown]
  - Drug hypersensitivity [Unknown]
  - Pain in extremity [Unknown]
  - Joint swelling [Unknown]
  - Mouth ulceration [Not Recovered/Not Resolved]
